FAERS Safety Report 15256134 (Version 2)
Quarter: 2018Q3

REPORT INFORMATION
  Report Type: Spontaneous
  Country: US (occurrence: US)
  Receive Date: 20180808
  Receipt Date: 20180816
  Transmission Date: 20181010
  Serious: Yes (Other)
  Sender: FDA-Public Use
  Company Number: US-ASTRAZENECA-2018SE98073

PATIENT
  Age: 60 Year
  Sex: Female
  Weight: 90.3 kg

DRUGS (13)
  1. ZOCOR [Concomitant]
     Active Substance: SIMVASTATIN
  2. CRESTOR [Suspect]
     Active Substance: ROSUVASTATIN CALCIUM
     Indication: BLOOD TRIGLYCERIDES
     Route: 048
     Dates: start: 201807
  3. XANAX [Concomitant]
     Active Substance: ALPRAZOLAM
     Dosage: EVERY NIGHT BEFORE BED FOR AT LEAST 10 YEARS
  4. BYETTA [Suspect]
     Active Substance: EXENATIDE
     Indication: TYPE 2 DIABETES MELLITUS
     Route: 058
  5. LISINOPRIL. [Suspect]
     Active Substance: LISINOPRIL
     Indication: BLOOD PRESSURE ABNORMAL
     Route: 048
  6. LOPRESSOR [Concomitant]
     Active Substance: METOPROLOL TARTRATE
     Dosage: 5MG BID, DURATION UNKNOWN
  7. CRESTOR [Suspect]
     Active Substance: ROSUVASTATIN CALCIUM
     Indication: BLOOD CHOLESTEROL ABNORMAL
     Dosage: CUT IN HALF, TOOK 5 MG EVERY DAY
     Route: 048
     Dates: start: 2010, end: 201807
  8. CRESTOR [Suspect]
     Active Substance: ROSUVASTATIN CALCIUM
     Indication: BLOOD CHOLESTEROL ABNORMAL
     Route: 048
     Dates: start: 201807
  9. TAMOXIFEN [Suspect]
     Active Substance: TAMOXIFEN
     Indication: BREAST CANCER FEMALE
     Route: 048
     Dates: start: 201301
  10. METFORMIN [Concomitant]
     Active Substance: METFORMIN HYDROCHLORIDE
  11. BYDUREON BCISE [Suspect]
     Active Substance: EXENATIDE
     Indication: TYPE 2 DIABETES MELLITUS
     Route: 058
     Dates: start: 20180724
  12. NORVASC [Concomitant]
     Active Substance: AMLODIPINE BESYLATE
     Indication: BLOOD PRESSURE ABNORMAL
     Dosage: 5MG ONCE A DAY
     Dates: start: 1980
  13. CRESTOR [Suspect]
     Active Substance: ROSUVASTATIN CALCIUM
     Indication: BLOOD TRIGLYCERIDES
     Dosage: CUT IN HALF, TOOK 5 MG EVERY DAY
     Route: 048
     Dates: start: 2010, end: 201807

REACTIONS (24)
  - Weight decreased [Unknown]
  - Memory impairment [Not Recovered/Not Resolved]
  - Hunger [Recovered/Resolved]
  - Feeling abnormal [Not Recovered/Not Resolved]
  - Vascular occlusion [Recovered/Resolved]
  - Arthralgia [Recovering/Resolving]
  - Irritability [Unknown]
  - Decreased appetite [Not Recovered/Not Resolved]
  - Intentional product misuse [Recovered/Resolved]
  - Rash [Recovered/Resolved]
  - Neck pain [Recovered/Resolved]
  - Nausea [Recovered/Resolved]
  - Headache [Not Recovered/Not Resolved]
  - Blood cholesterol increased [Not Recovered/Not Resolved]
  - Diarrhoea [Unknown]
  - Abdominal discomfort [Recovering/Resolving]
  - Breast cancer female [Unknown]
  - Muscle disorder [Recovered/Resolved]
  - Thinking abnormal [Not Recovered/Not Resolved]
  - Vomiting [Recovered/Resolved]
  - Blood triglycerides increased [Not Recovered/Not Resolved]
  - Pain [Unknown]
  - Abdominal pain upper [Unknown]
  - Drug ineffective [Unknown]

NARRATIVE: CASE EVENT DATE: 2010
